FAERS Safety Report 7995116-7 (Version None)
Quarter: 2011Q4

REPORT INFORMATION
  Report Type: 
  Country: None (occurrence: None)
  Receive Date: 20111220
  Receipt Date: 20111213
  Transmission Date: 20120403
  Serious: Yes (Hospitalization, Congenital Anomaly)
  Sender: FDA-Public Use
  Company Number: US-GLAXOSMITHKLINE-A0941715A

PATIENT
  Sex: Male
  Weight: 2.6 kg

DRUGS (1)
  1. WELLBUTRIN [Suspect]
     Indication: PRODUCT USED FOR UNKNOWN INDICATION
     Route: 064

REACTIONS (14)
  - AUTISM [None]
  - DEVELOPMENTAL DELAY [None]
  - ATRIAL SEPTAL DEFECT [None]
  - PATENT DUCTUS ARTERIOSUS [None]
  - GENERAL PHYSICAL HEALTH DETERIORATION [None]
  - MULTIPLE CONGENITAL ABNORMALITIES [None]
  - ECTOPIC KIDNEY [None]
  - GASTRIC VOLVULUS [None]
  - ANISOMETROPIA [None]
  - DYSMORPHISM [None]
  - FOETAL EXPOSURE DURING PREGNANCY [None]
  - CRYPTORCHISM [None]
  - GASTROSTOMY TUBE INSERTION [None]
  - MENTAL DISABILITY [None]
